FAERS Safety Report 7138765-0 (Version None)
Quarter: 2010Q4

REPORT INFORMATION
  Report Type: 
  Country: None (occurrence: None)
  Receive Date: 20101202
  Receipt Date: 20101202
  Transmission Date: 20110411
  Serious: Yes (Other)
  Sender: FDA-Public Use
  Company Number: None

PATIENT
  Sex: Female
  Weight: 54.7 kg

DRUGS (11)
  1. VORINOSTAT [Suspect]
     Indication: BREAST CANCER METASTATIC
     Dosage: 300MG DAILY
     Dates: start: 20101129, end: 20101130
  2. AMIODARONE [Concomitant]
  3. ATIVAN [Concomitant]
  4. COREG [Concomitant]
  5. IMODIUM [Concomitant]
  6. IRON [Concomitant]
  7. LANOXIN [Concomitant]
  8. MULTI-VITAMINS [Concomitant]
  9. PROTONIX [Concomitant]
  10. SYNTHROID [Concomitant]
  11. TYLENO [Concomitant]

REACTIONS (1)
  - OVERDOSE [None]
